FAERS Safety Report 4850126-3 (Version None)
Quarter: 2005Q4

REPORT INFORMATION
  Report Type: 
  Country: None (occurrence: None)
  Receive Date: 20051123
  Receipt Date: 20050528
  Transmission Date: 20060501
  Serious: Yes (Other)
  Sender: FDA-Public Use
  Company Number: 2005057807

PATIENT
  Age: 52 Year
  Sex: Female
  Weight: 131.9967 kg

DRUGS (6)
  1. LIPITOR [Suspect]
     Indication: HYPERLIPIDAEMIA
     Dosage: 20 MG (20 MG, 1 IN 1 D) ORAL
     Route: 048
     Dates: end: 20050323
  2. VICODIN ES [Concomitant]
  3. AMITRIPTYLINE (AMITRIPTYLINE) [Concomitant]
  4. DEPAKOTE - SLOW RELEASE (VALPROATE SEMISODIUM) [Concomitant]
  5. DETROL LA [Concomitant]
  6. BACLOFEN [Concomitant]

REACTIONS (7)
  - ANXIETY [None]
  - BIPOLAR DISORDER [None]
  - BLADDER DISORDER [None]
  - DRUG INEFFECTIVE [None]
  - GASTROOESOPHAGEAL REFLUX DISEASE [None]
  - PAIN [None]
  - RHABDOMYOLYSIS [None]
